FAERS Safety Report 9921696 (Version 1)
Quarter: 2014Q1

REPORT INFORMATION
  Report Type: Spontaneous
  Country: US (occurrence: None)
  Receive Date: 20140221
  Receipt Date: 20140221
  Transmission Date: 20141002
  Serious: Yes (Other)
  Sender: FDA-Public Use
  Company Number: None

PATIENT
  Sex: Female
  Weight: 83.4 kg

DRUGS (17)
  1. ABATACEPT [Suspect]
     Indication: RHEUMATOID ARTHRITIS
     Route: 058
     Dates: start: 201211, end: 201401
  2. DULOXETINE [Concomitant]
  3. NEURONTIN [Concomitant]
  4. ASPIRIN [Concomitant]
  5. ATENOLOL [Concomitant]
  6. ATORVASTATIN [Concomitant]
  7. CALCIUM [Concomitant]
  8. VITAMIN D [Concomitant]
  9. COLACE [Concomitant]
  10. FERROUS SULFATE [Concomitant]
  11. FOLIC ACID [Concomitant]
  12. HYDROXYCHLOROQUINE [Concomitant]
  13. METHOTREXATE [Concomitant]
  14. OXYCODONE [Concomitant]
  15. TIZANIDINE [Concomitant]
  16. TRAZODONE [Concomitant]
  17. VERAPAMIL [Concomitant]

REACTIONS (6)
  - Hyperkinesia [None]
  - Tremor [None]
  - Stereotypy [None]
  - Dyskinesia [None]
  - Tardive dyskinesia [None]
  - Akathisia [None]
